FAERS Safety Report 9783701 (Version 1)
Quarter: 2013Q4

REPORT INFORMATION
  Report Type: Spontaneous
  Country: US (occurrence: None)
  Receive Date: 20131223
  Receipt Date: 20131223
  Transmission Date: 20140711
  Serious: Yes (Hospitalization)
  Sender: FDA-Public Use
  Company Number: EUS-2011-00761

PATIENT
  Age: 16 Year
  Sex: Male

DRUGS (1)
  1. ERWINASE (ASPARAGINASE) [Suspect]
     Indication: ACUTE LYMPHOCYTIC LEUKAEMIA
     Dosage: (40500 IU, ON 6, 8, 11, 15, 18, AND 21 JAN 2011), INTRAMUSCULAR
     Route: 030

REACTIONS (3)
  - Dehydration [None]
  - Nausea [None]
  - Vomiting [None]
